FAERS Safety Report 6921335-4 (Version None)
Quarter: 2010Q3

REPORT INFORMATION
  Report Type: 
  Country: None (occurrence: None)
  Receive Date: 20100805
  Receipt Date: 20100402
  Transmission Date: 20110219
  Serious: No
  Sender: FDA-Public Use
  Company Number: US-001780

PATIENT
  Sex: Male
  Weight: 208 kg

DRUGS (8)
  1. DEGARELIX (80 MG, 80 MG, 240 MG) [Suspect]
     Indication: PROSTATE CANCER
     Dosage: (80 MG TOTAL SUBCUTANEOUS), (80 MG TOTAL SUBCUTANEOUS), (240 MG 1X/MONTH SUBCUTANEOUS)
     Route: 058
     Dates: start: 20100203
  2. DEGARELIX (80 MG, 80 MG, 240 MG) [Suspect]
     Indication: PROSTATE CANCER
     Dosage: (80 MG TOTAL SUBCUTANEOUS), (80 MG TOTAL SUBCUTANEOUS), (240 MG 1X/MONTH SUBCUTANEOUS)
     Route: 058
     Dates: start: 20100303
  3. DEGARELIX (80 MG, 80 MG, 240 MG) [Suspect]
     Indication: PROSTATE CANCER
     Dosage: (80 MG TOTAL SUBCUTANEOUS), (80 MG TOTAL SUBCUTANEOUS), (240 MG 1X/MONTH SUBCUTANEOUS)
     Route: 058
     Dates: start: 20100331
  4. AVODART [Concomitant]
  5. CASODEX [Concomitant]
  6. LIPITOR [Concomitant]
  7. LUPRON [Concomitant]
  8. ZOMETA [Concomitant]

REACTIONS (1)
  - INJECTION SITE ERYTHEMA [None]
